FAERS Safety Report 6756727-X (Version None)
Quarter: 2010Q2

REPORT INFORMATION
  Report Type: 
  Country: None (occurrence: None)
  Receive Date: 20100603
  Receipt Date: 20100603
  Transmission Date: 20101027
  Serious: Yes (Hospitalization)
  Sender: FDA-Public Use
  Company Number: None

PATIENT
  Sex: Male
  Weight: 46.2 kg

DRUGS (1)
  1. RISPERIDONE [Suspect]
     Indication: AGGRESSION
     Dosage: 0.5MG QAM PO
     Route: 048
     Dates: start: 20100301, end: 20100520

REACTIONS (5)
  - DYSKINESIA [None]
  - EXTRAPYRAMIDAL DISORDER [None]
  - GRIMACING [None]
  - PRODUCT SUBSTITUTION ISSUE [None]
  - TIC [None]
